FAERS Safety Report 8685652 (Version 2)
Quarter: 2012Q4

REPORT INFORMATION
  Report Type: 
  Country: US (occurrence: US)
  Receive Date: 20120726
  Receipt Date: 20120920
  Transmission Date: 20130627
  Serious: Yes (Hospitalization, Other)
  Sender: FDA-Public Use
  Company Number: US-BAYER-2012-074954

PATIENT
  Age: 47 Year
  Sex: Female
  Weight: 113.38 kg

DRUGS (3)
  1. BETASERON [Suspect]
     Indication: MULTIPLE SCLEROSIS
     Dosage: 0.25 mg, QOD
     Route: 058
     Dates: start: 201003, end: 20120413
  2. ZYRTEC [Concomitant]
     Indication: MULTIPLE ALLERGIES
     Dosage: UNK UNK, ONCE
     Dates: start: 200404
  3. TEKTURNA [Concomitant]
     Indication: BLOOD PRESSURE MANAGEMENT
     Dosage: 300 mg, ONCE
     Dates: start: 201102

REACTIONS (2)
  - Staphylococcal sepsis [Recovered/Resolved]
  - Staphylococcal sepsis [Recovered/Resolved]
